FAERS Safety Report 9166206 (Version 1)
Quarter: 2013Q1

REPORT INFORMATION
  Report Type: Other
  Country: US (occurrence: US)
  Receive Date: 20130315
  Receipt Date: 20130315
  Transmission Date: 20140127
  Serious: Yes (Death)
  Sender: FDA-Public Use
  Company Number: US-BRISTOL-MYERS SQUIBB COMPANY-17481359

PATIENT
  Sex: Male

DRUGS (5)
  1. ACETAMINOPHEN [Suspect]
  2. METFORMIN HCL [Suspect]
  3. DIPHENHYDRAMINE [Suspect]
  4. METOPROLOL [Suspect]
  5. AMLODIPINE [Suspect]

REACTIONS (1)
  - Toxicity to various agents [Fatal]
